FAERS Safety Report 13204273 (Version 2)
Quarter: 2017Q2

REPORT INFORMATION
  Report Type: Spontaneous
  Country: JP (occurrence: JP)
  Receive Date: 20170209
  Receipt Date: 20170420
  Transmission Date: 20170830
  Serious: Yes (Life-Threatening, Hospitalization, Other)
  Sender: FDA-Public Use
  Company Number: JP-NOVOPROD-529892

PATIENT
  Age: 73 Year
  Sex: Female
  Weight: 38 kg

DRUGS (5)
  1. NOVORAPID [Suspect]
     Active Substance: INSULIN ASPART
     Indication: PANCREATOGENOUS DIABETES
     Dosage: THREE TIMES A DAY (10-12IU/DAY)
     Route: 058
     Dates: start: 201206
  2. MEILAX [Concomitant]
     Active Substance: ETHYL LOFLAZEPATE
     Indication: DEPRESSION
     Dosage: UNK
  3. NOVORAPID [Suspect]
     Active Substance: INSULIN ASPART
     Dosage: 900 IU
     Route: 058
     Dates: start: 20160613
  4. LANTUS [Suspect]
     Active Substance: INSULIN GLARGINE
     Indication: PANCREATOGENOUS DIABETES
     Dosage: 3-5 IU/DAY
     Route: 058
     Dates: start: 201206
  5. LANTUS [Suspect]
     Active Substance: INSULIN GLARGINE
     Dosage: 900 IU
     Route: 058
     Dates: start: 20160613

REACTIONS (3)
  - Suicide attempt [Unknown]
  - Intentional overdose [Recovered/Resolved]
  - Hypoglycaemia [Recovered/Resolved]

NARRATIVE: CASE EVENT DATE: 20160613
